FAERS Safety Report 6801706-7 (Version None)
Quarter: 2010Q2

REPORT INFORMATION
  Report Type: 
  Country: None (occurrence: None)
  Receive Date: 20100629
  Receipt Date: 20100617
  Transmission Date: 20101027
  Serious: Yes (Hospitalization)
  Sender: FDA-Public Use
  Company Number: US-BRISTOL-MYERS SQUIBB COMPANY-15166739

PATIENT
  Age: 56 Year
  Sex: Male
  Weight: 92 kg

DRUGS (4)
  1. CETUXIMAB [Suspect]
     Indication: NON-SMALL CELL LUNG CANCER
     Dosage: RECENT INF:01JUN10(6TH),39D
     Route: 042
     Dates: start: 20100423
  2. CISPLATIN [Suspect]
     Indication: NON-SMALL CELL LUNG CANCER
     Dosage: RECENT INF:24MAY10:2ND,31D
     Route: 042
     Dates: start: 20100423
  3. PEMETREXED DISODIUM [Suspect]
     Indication: NON-SMALL CELL LUNG CANCER
     Dosage: INTERRUPTED ON 24MAY10(2ND),31D
     Route: 042
     Dates: start: 20100423
  4. FOLIC ACID [Concomitant]

REACTIONS (2)
  - LUNG INFILTRATION [None]
  - PLEURAL EFFUSION [None]
